FAERS Safety Report 23699464 (Version 1)
Quarter: 2024Q2

REPORT INFORMATION
  Report Type: Spontaneous
  Country: US (occurrence: US)
  Receive Date: 20240402
  Receipt Date: 20240402
  Transmission Date: 20240716
  Serious: Yes (Other)
  Sender: FDA-Public Use
  Company Number: US-SA-SAC20240401001301

PATIENT
  Age: 42 Year
  Sex: Male

DRUGS (3)
  1. DUPIXENT [Suspect]
     Active Substance: DUPILUMAB
     Indication: Eosinophilic oesophagitis
     Dosage: 300 MG, QW
     Route: 058
     Dates: start: 20231210
  2. HYOSCYAMINE SULFATE [Concomitant]
     Active Substance: HYOSCYAMINE SULFATE
  3. MELOXICAM [Concomitant]
     Active Substance: MELOXICAM
     Indication: Plantar fasciitis

REACTIONS (4)
  - Nephrolithiasis [Unknown]
  - Nausea [Recovered/Resolved]
  - Pain [Recovered/Resolved]
  - Oropharyngeal discomfort [Not Recovered/Not Resolved]

NARRATIVE: CASE EVENT DATE: 20240301
